FAERS Safety Report 8191706-X (Version None)
Quarter: 2012Q1

REPORT INFORMATION
  Report Type: 
  Country: None (occurrence: None)
  Receive Date: 20120307
  Receipt Date: 20110405
  Transmission Date: 20120608
  Serious: No
  Sender: FDA-Public Use
  Company Number: US-ASTRAZENECA-2011SE08985

PATIENT
  Age: 59 Year
  Sex: Male

DRUGS (5)
  1. ZOMIG [Suspect]
     Route: 048
     Dates: start: 20071206
  2. ZOMIG [Suspect]
     Dosage: HALF AT A TIME
     Route: 048
     Dates: start: 20090205
  3. THYROID [Concomitant]
     Indication: HYPOTHYROIDISM
  4. SYNTHROID [Concomitant]
  5. LEVOTHROID [Concomitant]

REACTIONS (1)
  - MIGRAINE [None]
